FAERS Safety Report 9164662 (Version 1)
Quarter: 2013Q1

REPORT INFORMATION
  Report Type: Spontaneous
  Country: US (occurrence: None)
  Receive Date: 20130225
  Receipt Date: 20130225
  Transmission Date: 20140127
  Serious: Yes (Hospitalization)
  Sender: FDA-Public Use
  Company Number: 2515444201300001

PATIENT
  Sex: Male

DRUGS (2)
  1. BANANA BOAT DEEP TANNING DRY SPF 8 [Suspect]
     Indication: SUNBURN
     Dosage: NO DOSING LIMITATIONS
     Dates: start: 20121029
  2. BANANA BOAT DEEP TANNING DRY SPF 8 [Suspect]
     Indication: PROPHYLAXIS
     Dosage: NO DOSING LIMITATIONS
     Dates: start: 20121029

REACTIONS (6)
  - Thermal burn [None]
  - Joint injury [None]
  - Rotator cuff syndrome [None]
  - Scar [None]
  - Fall [None]
  - Scab [None]
